FAERS Safety Report 20145871 (Version 1)
Quarter: 2021Q4

REPORT INFORMATION
  Report Type: Spontaneous
  Country: US (occurrence: None)
  Receive Date: 20211203
  Receipt Date: 20211203
  Transmission Date: 20220303
  Serious: No
  Sender: FDA-Public Use
  Company Number: None

PATIENT
  Age: 54 Year
  Sex: Male

DRUGS (1)
  1. BAMLANIVIMAB\ETESEVIMAB [Suspect]
     Active Substance: BAMLANIVIMAB\ETESEVIMAB
     Dosage: OTHER QUANTITY : 700/1400 MG;?FREQUENCY : ONCE;?
     Route: 042
     Dates: start: 20211201, end: 20211201

REACTIONS (8)
  - Tachycardia [None]
  - Hypertension [None]
  - Flushing [None]
  - Nausea [None]
  - Abdominal discomfort [None]
  - Vomiting [None]
  - Hyperhidrosis [None]
  - Dizziness [None]

NARRATIVE: CASE EVENT DATE: 20211201
